FAERS Safety Report 21950467 (Version 1)
Quarter: 2023Q1

REPORT INFORMATION
  Report Type: Spontaneous
  Country: US (occurrence: US)
  Receive Date: 20230203
  Receipt Date: 20230203
  Transmission Date: 20230418
  Serious: Yes (Other)
  Sender: FDA-Public Use
  Company Number: US-NOVOPROD-987252

PATIENT
  Age: 73 Year
  Sex: Female

DRUGS (2)
  1. OZEMPIC [Suspect]
     Active Substance: SEMAGLUTIDE
     Indication: Product used for unknown indication
     Dosage: 1 MG, QW
     Route: 058
     Dates: start: 20221113
  2. GLUCOPHAGE [Concomitant]
     Active Substance: METFORMIN HYDROCHLORIDE
     Indication: Product used for unknown indication
     Dosage: 2000 MG

REACTIONS (9)
  - Fall [Recovered/Resolved]
  - Ankle fracture [Not Recovered/Not Resolved]
  - Pancreatic disorder [Recovered/Resolved]
  - Abnormal loss of weight [Unknown]
  - Diarrhoea [Unknown]
  - Off label use [Recovered/Resolved]
  - Dehydration [Recovered/Resolved]
  - Blood glucose abnormal [Unknown]
  - Abdominal discomfort [Unknown]

NARRATIVE: CASE EVENT DATE: 20220101
